FAERS Safety Report 7234735-2 (Version None)
Quarter: 2011Q1

REPORT INFORMATION
  Report Type: 
  Country: None (occurrence: None)
  Receive Date: 20110120
  Receipt Date: 20110118
  Transmission Date: 20110831
  Serious: No
  Sender: FDA-Public Use
  Company Number: US-BIOGENIDEC-2011BI001904

PATIENT
  Sex: Male

DRUGS (3)
  1. GABAPENTIN [Concomitant]
     Indication: PARAESTHESIA
  2. AVONEX [Suspect]
     Indication: MULTIPLE SCLEROSIS
     Route: 030
     Dates: start: 20090501, end: 20110101
  3. AVONEX [Suspect]
     Route: 030
     Dates: start: 20110101

REACTIONS (8)
  - BACK PAIN [None]
  - INSOMNIA [None]
  - MUSCULAR WEAKNESS [None]
  - INFLUENZA LIKE ILLNESS [None]
  - ASTHENIA [None]
  - FALL [None]
  - PROGRESSIVE MULTIPLE SCLEROSIS [None]
  - PARAESTHESIA [None]
